FAERS Safety Report 24969202 (Version 1)
Quarter: 2025Q1

REPORT INFORMATION
  Report Type: Spontaneous
  Country: CA (occurrence: CA)
  Receive Date: 20250214
  Receipt Date: 20250214
  Transmission Date: 20250408
  Serious: Yes (Other)
  Sender: CSL BEHRING
  Company Number: CA-BEH-2025195317

PATIENT
  Age: 27 Year
  Sex: Male

DRUGS (2)
  1. HUMAN IMMUNOGLOBULIN G [Suspect]
     Active Substance: HUMAN IMMUNOGLOBULIN G
     Indication: Sepsis
     Route: 042
  2. HUMAN IMMUNOGLOBULIN G [Suspect]
     Active Substance: HUMAN IMMUNOGLOBULIN G
     Indication: Off label use
     Dosage: 60 MG, QD
     Route: 042

REACTIONS (4)
  - Red blood cell abnormality [Recovered/Resolved]
  - Transfusion [Recovered/Resolved]
  - Coombs direct test positive [Recovered/Resolved]
  - Off label use [Not Recovered/Not Resolved]
